FAERS Safety Report 23681332 (Version 2)
Quarter: 2024Q2

REPORT INFORMATION
  Report Type: Spontaneous
  Country: JP (occurrence: JP)
  Receive Date: 20240328
  Receipt Date: 20240603
  Transmission Date: 20240716
  Serious: Yes (Other)
  Sender: FDA-Public Use
  Company Number: JP-GSK-JP2024JPN033713

PATIENT

DRUGS (3)
  1. DAPRODUSTAT [Suspect]
     Active Substance: DAPRODUSTAT
     Indication: Nephrogenic anaemia
     Dosage: 4 MG
     Route: 048
     Dates: start: 20240118, end: 20240320
  2. KREMEZIN [Suspect]
     Active Substance: ACTIVATED CHARCOAL
     Indication: Prophylaxis
     Dosage: UNK
  3. DARBEPOETIN ALFA [Concomitant]
     Active Substance: DARBEPOETIN ALFA
     Indication: Nephrogenic anaemia
     Dosage: 60 UG

REACTIONS (2)
  - Nephrogenic anaemia [Recovered/Resolved]
  - Condition aggravated [Recovered/Resolved]
